FAERS Safety Report 5612715-8 (Version None)
Quarter: 2008Q1

REPORT INFORMATION
  Report Type: 
  Country: None (occurrence: None)
  Receive Date: 20080204
  Receipt Date: 20080129
  Transmission Date: 20080703
  Serious: Yes (Hospitalization)
  Sender: FDA-Public Use
  Company Number: PHBS2007JP19554

PATIENT
  Age: 58 Year
  Sex: Male
  Weight: 64 kg

DRUGS (4)
  1. CYANOCOBALAMIN [Concomitant]
  2. TEGRETOL [Suspect]
     Indication: TREMOR
     Dosage: 200 MG
     Route: 048
     Dates: start: 20070720, end: 20070817
  3. HISHIPHAGEN-C [Concomitant]
  4. GLYCYRON [Concomitant]

REACTIONS (22)
  - ADHESION [None]
  - ALANINE AMINOTRANSFERASE INCREASED [None]
  - ANOREXIA [None]
  - ASPARTATE AMINOTRANSFERASE INCREASED [None]
  - BLOOD ALKALINE PHOSPHATASE INCREASED [None]
  - BLOOD CREATINE PHOSPHOKINASE INCREASED [None]
  - BLOOD LACTATE DEHYDROGENASE INCREASED [None]
  - BODY TEMPERATURE DECREASED [None]
  - ERYTHEMA [None]
  - GAMMA-GLUTAMYLTRANSFERASE INCREASED [None]
  - HEPATIC FUNCTION ABNORMAL [None]
  - HYPERTHERMIA [None]
  - INFLAMMATION [None]
  - LYMPHADENOPATHY [None]
  - LYMPHOCYTE STIMULATION TEST POSITIVE [None]
  - MALAISE [None]
  - PHARYNGEAL ERYTHEMA [None]
  - PYREXIA [None]
  - RASH [None]
  - STEVENS-JOHNSON SYNDROME [None]
  - VOMITING [None]
  - WHITE BLOOD CELL COUNT INCREASED [None]
